FAERS Safety Report 9536578 (Version 6)
Quarter: 2014Q1

REPORT INFORMATION
  Report Type: Spontaneous
  Country: US (occurrence: US)
  Receive Date: 20130919
  Receipt Date: 20140328
  Transmission Date: 20141002
  Serious: Yes (Death)
  Sender: FDA-Public Use
  Company Number: US-JNJFOC-20130909624

PATIENT
  Sex: Female
  Weight: 59.88 kg

DRUGS (4)
  1. EXTRA STRENGTH TYLENOL [Suspect]
     Route: 048
  2. EXTRA STRENGTH TYLENOL [Suspect]
     Indication: EYE INJURY
     Dosage: ATLEAST TWO PILLS THREE TO FOUR DAYS
     Route: 048
     Dates: start: 2011, end: 20120710
  3. REGULAR STRENGTH TYLENOL [Suspect]
     Route: 048
  4. REGULAR STRENGTH TYLENOL [Suspect]
     Indication: PRODUCT USED FOR UNKNOWN INDICATION
     Route: 048
     Dates: start: 2012, end: 201207

REACTIONS (10)
  - Chronic hepatic failure [Fatal]
  - Staphylococcal infection [Fatal]
  - Overdose [Fatal]
  - Acute hepatic failure [Fatal]
  - Renal failure chronic [Unknown]
  - Upper gastrointestinal haemorrhage [Unknown]
  - Hepatic cirrhosis [Unknown]
  - Subdural haemorrhage [Unknown]
  - Anaemia macrocytic [Unknown]
  - Toxicity to various agents [Unknown]
